FAERS Safety Report 7218864-5 (Version None)
Quarter: 2011Q1

REPORT INFORMATION
  Report Type: 
  Country: None (occurrence: None)
  Receive Date: 20110110
  Receipt Date: 20101216
  Transmission Date: 20110831
  Serious: Yes (Death, Life-Threatening, Hospitalization, Other)
  Sender: FDA-Public Use
  Company Number: JP-AMGEN-US399580

PATIENT

DRUGS (20)
  1. ENBREL [Suspect]
     Dosage: 50 MG, QWK
     Route: 058
     Dates: start: 20090212, end: 20100302
  2. ENBREL [Suspect]
     Dosage: 50.0 MG, 1X/WK
     Route: 058
     Dates: start: 20090212, end: 20100302
  3. IANSOPRAZOLE [Concomitant]
     Dosage: 15 MG, QD
     Route: 048
     Dates: start: 20061220, end: 20100302
  4. PRELONE [Concomitant]
     Dosage: UNK
  5. ALENDRONATE SODIUM [Concomitant]
     Dosage: 35 MG, QWK
     Route: 048
     Dates: start: 20081125, end: 20100204
  6. ASPARA-CA [Concomitant]
     Dosage: 400 MG, QD
     Route: 048
     Dates: start: 20061031, end: 20100302
  7. TACROLIMUS [Concomitant]
     Dosage: 2 MG, QD
     Route: 048
     Dates: start: 20061220, end: 20090324
  8. ALFAROL [Concomitant]
     Dosage: 1 MG, QD
     Route: 048
     Dates: start: 20061031, end: 20100204
  9. METHOTREXATE [Suspect]
     Dosage: UNK UNK, UNK
     Route: 048
     Dates: start: 20090930, end: 20091028
  10. FOSAMAX [Concomitant]
     Dosage: UNK
     Route: 048
     Dates: start: 20081125, end: 20100204
  11. TACROLIMUS [Concomitant]
     Dosage: 2 MG, QD
     Route: 048
     Dates: start: 20090507, end: 20090701
  12. LOXOPROFEN SODIUM [Concomitant]
     Dosage: 180 MG, QD
     Route: 048
     Dates: start: 20060201, end: 20100302
  13. PROGRAF [Concomitant]
     Dosage: UNK
     Route: 048
     Dates: start: 20090507, end: 20090701
  14. ALFAROL [Concomitant]
     Dosage: UNK
  15. ASPARA-CA [Concomitant]
     Dosage: UNK
  16. PRELONE [Concomitant]
     Dosage: 3 MG, QD
     Route: 048
     Dates: end: 20100302
  17. TAKEPRON [Suspect]
     Indication: ULCER
     Dosage: 15 MG, 1X/DAY
     Route: 048
     Dates: start: 20061220, end: 20100302
  18. RHEUMATREX [Suspect]
     Indication: RHEUMATOID ARTHRITIS
     Dosage: UNSPECIFIED
     Route: 048
     Dates: start: 20090930, end: 20091028
  19. LOXONIN [Concomitant]
     Dosage: UNK
     Route: 048
     Dates: start: 20060201, end: 20100302
  20. PROGRAF [Concomitant]
     Dosage: UNK
     Route: 048
     Dates: start: 20061220, end: 20090324

REACTIONS (14)
  - LUMBAR SPINAL STENOSIS [None]
  - CEREBRAL INFARCTION [None]
  - ACUTE DISSEMINATED ENCEPHALOMYELITIS [None]
  - VASCULITIS [None]
  - DEAFNESS BILATERAL [None]
  - BLOOD PHOSPHORUS DECREASED [None]
  - TEMPERATURE INTOLERANCE [None]
  - RENAL IMPAIRMENT [None]
  - DISSEMINATED INTRAVASCULAR COAGULATION [None]
  - CENTRAL NERVOUS SYSTEM LESION [None]
  - TINNITUS [None]
  - PLATELET COUNT DECREASED [None]
  - BLOOD POTASSIUM DECREASED [None]
  - URINARY TRACT INFECTION [None]
